FAERS Safety Report 4994700-2 (Version None)
Quarter: 2006Q1

REPORT INFORMATION
  Report Type: 
  Country: None (occurrence: None)
  Receive Date: 20060313
  Receipt Date: 20050328
  Transmission Date: 20060701
  Serious: Yes (Other)
  Sender: FDA-Public Use
  Company Number: PHEH2005US03726

PATIENT
  Age: 11 Year
  Sex: Female
  Weight: 45.4 kg

DRUGS (1)
  1. TRILEPTAL [Suspect]
     Indication: CONVULSION
     Dosage: 6600 MG

REACTIONS (1)
  - CONVULSION [None]
